FAERS Safety Report 17082399 (Version 2)
Quarter: 2020Q1

REPORT INFORMATION
  Report Type: Spontaneous
  Country: IT (occurrence: IT)
  Receive Date: 20191127
  Receipt Date: 20200101
  Transmission Date: 20200409
  Serious: Yes (Other)
  Sender: FDA-Public Use
  Company Number: IT-STALLERGENES SAS-2077249

PATIENT
  Age: 73 Year
  Sex: Female

DRUGS (2)
  1. SUPRADYN [Concomitant]
     Active Substance: ASCORBIC ACID\MINERALS\VITAMINS
     Route: 048
  2. ORALAIR [Suspect]
     Active Substance: ANTHOXANTHUM ODORATUM POLLEN\DACTYLIS GLOMERATA POLLEN\LOLIUM PERENNE POLLEN\PHLEUM PRATENSE POLLEN\POA PRATENSIS POLLEN
     Route: 060
     Dates: start: 20190925, end: 20191002

REACTIONS (5)
  - Confusional state [Recovered/Resolved with Sequelae]
  - Lacrimation increased [Recovered/Resolved with Sequelae]
  - Headache [Recovered/Resolved with Sequelae]
  - Pharyngitis [Recovered/Resolved with Sequelae]
  - Angioedema [Recovered/Resolved with Sequelae]

NARRATIVE: CASE EVENT DATE: 20190926
